FAERS Safety Report 7541601-1 (Version None)
Quarter: 2011Q2

REPORT INFORMATION
  Report Type: 
  Country: None (occurrence: None)
  Receive Date: 20110613
  Receipt Date: 20110601
  Transmission Date: 20111010
  Serious: No
  Sender: FDA-Public Use
  Company Number: CA-ELI_LILLY_AND_COMPANY-CA201106000254

PATIENT
  Sex: Male

DRUGS (5)
  1. LITHIUM CARBONATE [Concomitant]
  2. ZYPREXA [Suspect]
     Dosage: 7.5 MG, QD
  3. ZYPREXA [Suspect]
     Indication: BIPOLAR DISORDER
     Dosage: 5 MG, EACH EVENING
  4. LORAZEPAM [Concomitant]
  5. SERTRALINE HYDROCHLORIDE [Concomitant]

REACTIONS (5)
  - GLUCOSE TOLERANCE IMPAIRED [None]
  - WEIGHT INCREASED [None]
  - RECTAL HAEMORRHAGE [None]
  - DIABETES MELLITUS [None]
  - PROTEINURIA [None]
